FAERS Safety Report 7584192-1 (Version None)
Quarter: 2011Q2

REPORT INFORMATION
  Report Type: 
  Country: None (occurrence: None)
  Receive Date: 20110630
  Receipt Date: 20110629
  Transmission Date: 20111010
  Serious: Yes (Other)
  Sender: FDA-Public Use
  Company Number: US-BRISTOL-MYERS SQUIBB COMPANY-15863426

PATIENT
  Age: 26 Year
  Sex: Female

DRUGS (3)
  1. LISINOPRIL [Concomitant]
  2. METFORMIN HCL [Suspect]
     Indication: DIABETES MELLITUS
     Dates: start: 20070101
  3. GLIPIZIDE [Concomitant]

REACTIONS (1)
  - RENAL DISORDER [None]
